FAERS Safety Report 9286620 (Version 2)
Quarter: 2013Q2

REPORT INFORMATION
  Report Type: Spontaneous
  Country: US (occurrence: US)
  Receive Date: 20130513
  Receipt Date: 20130614
  Transmission Date: 20140414
  Serious: Yes (Other)
  Sender: FDA-Public Use
  Company Number: US-TEVA-404539USA

PATIENT
  Sex: Female

DRUGS (2)
  1. NEOMYCIN [Suspect]
  2. ZOSTAVAX [Concomitant]
     Route: 058

REACTIONS (1)
  - Anaphylactic reaction [Unknown]
